FAERS Safety Report 22025648 (Version 1)
Quarter: 2023Q1

REPORT INFORMATION
  Report Type: Spontaneous
  Country: US (occurrence: None)
  Receive Date: 20230223
  Receipt Date: 20230223
  Transmission Date: 20230417
  Serious: No
  Sender: FDA-Public Use
  Company Number: US-ROCHE-3143742

PATIENT
  Sex: Female
  Weight: 90.800 kg

DRUGS (1)
  1. XOLAIR [Suspect]
     Active Substance: OMALIZUMAB
     Indication: Asthma
     Route: 058
     Dates: start: 20220318

REACTIONS (3)
  - Pain in extremity [Unknown]
  - Weight increased [Unknown]
  - Abdominal distension [Unknown]
